FAERS Safety Report 5927981-9 (Version None)
Quarter: 2008Q4

REPORT INFORMATION
  Report Type: 
  Country: None (occurrence: None)
  Receive Date: 20081022
  Receipt Date: 20081022
  Transmission Date: 20090506
  Serious: Yes (Death)
  Sender: FDA-Public Use
  Company Number: None

PATIENT
  Age: 71 Year
  Sex: Female
  Weight: 70 kg

DRUGS (7)
  1. BEVACIZUMAB (GENENTECH, INC.) [Suspect]
     Indication: GLIOBLASTOMA MULTIFORME
     Dosage: 700 MG Q2WKS IV
     Route: 042
     Dates: start: 20080307, end: 20080321
  2. TEMOZOLOMIDE [Suspect]
     Indication: GLIOBLASTOMA MULTIFORME
     Dosage: 360MG DAYS 1-5 PO
     Route: 048
     Dates: start: 20080307, end: 20080311
  3. SYNTHROID [Concomitant]
  4. METOPROLOL TARTRATE [Concomitant]
  5. CORTEF VITAMIN E [Concomitant]
  6. DECADRON [Concomitant]
  7. LOTREL [Concomitant]

REACTIONS (1)
  - DEATH [None]
